FAERS Safety Report 15222821 (Version 3)
Quarter: 2019Q3

REPORT INFORMATION
  Report Type: Spontaneous
  Country: CA (occurrence: CA)
  Receive Date: 20180731
  Receipt Date: 20190910
  Transmission Date: 20191004
  Serious: Yes (Hospitalization)
  Sender: FDA-Public Use
  Company Number: CA-SHIRE-CA201829129

PATIENT

DRUGS (11)
  1. 503 (GUANFACINE HYDROCHLORIDE) [Suspect]
     Active Substance: GUANFACINE HYDROCHLORIDE
     Dosage: 3 MILLIGRAM, UNKNOWN
     Route: 065
  2. BUPROPION. [Suspect]
     Active Substance: BUPROPION
     Indication: ATTENTION DEFICIT/HYPERACTIVITY DISORDER
     Dosage: 300 MILLIGRAM
     Route: 065
  3. ATOMOXETINE. [Suspect]
     Active Substance: ATOMOXETINE HYDROCHLORIDE
     Dosage: 1.1 MILLIGRAM/KILOGRAM, UNKNOWN
     Route: 065
  4. ATOMOXETINE. [Suspect]
     Active Substance: ATOMOXETINE HYDROCHLORIDE
     Dosage: 1.6 MILLIGRAM/KILOGRAM, UNKNOWN
     Route: 065
  5. METHYLPHENIDATE. [Suspect]
     Active Substance: METHYLPHENIDATE
     Dosage: 20 MILLIGRAM
     Route: 065
  6. BUPROPION. [Suspect]
     Active Substance: BUPROPION
     Dosage: 200 MILLIGRAM
     Route: 065
  7. APO ATOMOXETINE [Suspect]
     Active Substance: ATOMOXETINE HYDROCHLORIDE
     Indication: ATTENTION DEFICIT/HYPERACTIVITY DISORDER
     Dosage: 0.6-1.6 MILLIGRAM/KILLIGRAM
     Route: 065
  8. ATOMOXETINE. [Suspect]
     Active Substance: ATOMOXETINE HYDROCHLORIDE
     Indication: ATTENTION DEFICIT/HYPERACTIVITY DISORDER
     Dosage: 1.5 MILLIGRAM/KILOGRAM, UNKNOWN
     Route: 065
  9. 503 (GUANFACINE HYDROCHLORIDE) [Suspect]
     Active Substance: GUANFACINE HYDROCHLORIDE
     Indication: ATTENTION DEFICIT/HYPERACTIVITY DISORDER
     Dosage: 1-3 MILLIGRAM
     Route: 065
  10. 489 (LISDEXAMFETAMINE DIMESYLATE) [Suspect]
     Active Substance: LISDEXAMFETAMINE DIMESYLATE
     Indication: ATTENTION DEFICIT/HYPERACTIVITY DISORDER
     Dosage: 20-30 MILLIGRAM
     Route: 065
  11. METHYLPHENIDATE. [Suspect]
     Active Substance: METHYLPHENIDATE
     Indication: ATTENTION DEFICIT/HYPERACTIVITY DISORDER
     Dosage: 18 MILLIGRAM
     Route: 065

REACTIONS (9)
  - Condition aggravated [Unknown]
  - Insomnia [Unknown]
  - Therapeutic product effect decreased [Unknown]
  - Product use in unapproved indication [Unknown]
  - Therapy non-responder [Unknown]
  - Gastrointestinal disorder [Unknown]
  - Tic [Unknown]
  - Weight decreased [Unknown]
  - Drug ineffective [Unknown]
